FAERS Safety Report 6551513-8 (Version None)
Quarter: 2010Q1

REPORT INFORMATION
  Report Type: 
  Country: None (occurrence: None)
  Receive Date: 20100120
  Receipt Date: 20100106
  Transmission Date: 20100710
  Serious: Yes (Hospitalization)
  Sender: FDA-Public Use
  Company Number: 004412

PATIENT
  Age: 48 Year
  Sex: Male

DRUGS (2)
  1. LEVETIRACETAM [Suspect]
     Dosage: (ORAL)
     Route: 048
     Dates: end: 20090101
  2. ZYPREXA [Concomitant]

REACTIONS (2)
  - CHOLECYSTITIS INFECTIVE [None]
  - CONSTIPATION [None]
